FAERS Safety Report 8475649-X (Version None)
Quarter: 2012Q2

REPORT INFORMATION
  Report Type: 
  Country: None (occurrence: None)
  Receive Date: 20120628
  Receipt Date: 20090317
  Transmission Date: 20120825
  Serious: Yes (Other)
  Sender: FDA-Public Use
  Company Number: TR-ROCHE-1082533

PATIENT
  Sex: Female

DRUGS (1)
  1. XOLAIR [Suspect]
     Indication: ASTHMA
     Route: 058
     Dates: start: 20081222

REACTIONS (5)
  - BLOOD TEST ABNORMAL [None]
  - MALAISE [None]
  - UPPER LIMB FRACTURE [None]
  - INFLUENZA [None]
  - DYSPNOEA [None]
